FAERS Safety Report 10179154 (Version 1)
Quarter: 2014Q2

REPORT INFORMATION
  Report Type: Spontaneous
  Country: GB (occurrence: GB)
  Receive Date: 20140519
  Receipt Date: 20140519
  Transmission Date: 20141212
  Serious: Yes (Death, Other)
  Sender: FDA-Public Use
  Company Number: PHFR2014GB003413

PATIENT
  Age: 64 Year
  Sex: Male
  Weight: 89.4 kg

DRUGS (7)
  1. FLUCLOXACILLIN [Suspect]
     Indication: CELLULITIS
     Route: 042
  2. BENZYLPENICILLIN [Suspect]
     Indication: CELLULITIS
     Route: 042
  3. SODIUM CHLORIDE ^BAXTER^ [Suspect]
     Indication: MEDICATION DILUTION
     Route: 065
     Dates: start: 20140319
  4. STERILE WATER FOR INJ. [Suspect]
     Indication: MEDICATION DILUTION
     Route: 065
     Dates: start: 20140319
  5. ACICLOVIR [Suspect]
     Indication: ANTIVIRAL PROPHYLAXIS
     Route: 065
  6. BRENTUXIMAB VEDOTIN [Suspect]
     Indication: ANAPLASTIC LARGE-CELL LYMPHOMA
     Route: 042
     Dates: start: 20140319, end: 20140319
  7. CO-TRIMOXAZOLE [Suspect]
     Indication: ANTIVIRAL PROPHYLAXIS
     Route: 048

REACTIONS (4)
  - Death [Fatal]
  - Cardiovascular disorder [Recovered/Resolved]
  - Infection [Unknown]
  - Cellulitis [Unknown]
